FAERS Safety Report 7737814-6 (Version None)
Quarter: 2011Q3

REPORT INFORMATION
  Report Type: 
  Country: None (occurrence: None)
  Receive Date: 20110908
  Receipt Date: 20110830
  Transmission Date: 20111222
  Serious: Yes (Hospitalization)
  Sender: FDA-Public Use
  Company Number: PHHY2011CH53550

PATIENT
  Age: 36 Year
  Sex: Female

DRUGS (18)
  1. FAMVIR [Suspect]
     Indication: PYREXIA
     Dosage: 500 MG, BID
     Route: 048
     Dates: start: 20110405, end: 20110412
  2. MOTILIUM [Concomitant]
     Indication: VOMITING
     Dosage: 10 MG, PRN
     Route: 060
     Dates: start: 20110412, end: 20110421
  3. NEXIUM [Concomitant]
     Indication: VOMITING
     Dosage: 40 MG, QD
     Route: 048
     Dates: start: 20110308
  4. IDARUBICIN HYDROCHLORIDE [Concomitant]
     Indication: MYELODYSPLASTIC SYNDROME
     Dosage: 12 MG/M2, QD
     Route: 042
     Dates: start: 20110310, end: 20110312
  5. AMSIDYL [Concomitant]
     Indication: MYELODYSPLASTIC SYNDROME
     Dosage: 120 MG/M2, QD
     Route: 042
     Dates: start: 20110401, end: 20110403
  6. ACETAMINOPHEN [Concomitant]
     Indication: PAIN
     Dosage: 500 MG, PRN
     Route: 040
     Dates: start: 20110308, end: 20110426
  7. PRIMOLUT N [Concomitant]
     Dosage: 5 MG ONCE PER FOUR DAYS
     Route: 048
  8. METOCLOPRAMIDE HYDROCHLORIDE [Concomitant]
     Indication: VOMITING
     Dosage: 10 MG ONCE IN THREE DAYS
     Route: 048
     Dates: start: 20110308, end: 20110411
  9. SCOPOLAMINE [Concomitant]
     Dosage: 10 MG, PRN
     Route: 048
     Dates: start: 20110308, end: 20110426
  10. DEXAMETHASONE [Concomitant]
     Dosage: 8 MG ONCE PER THREE DAYS
     Route: 048
     Dates: start: 20110301, end: 20110301
  11. ZOLPIDEM [Concomitant]
     Indication: SLEEP DISORDER
     Dosage: 10 MG, PRN
     Route: 048
     Dates: start: 20110308, end: 20110426
  12. ESCITALOPRAM [Concomitant]
     Indication: BIPOLAR DISORDER
     Dosage: 10 MG, QD
     Route: 048
     Dates: start: 20110308, end: 20110421
  13. CANCIDAS [Concomitant]
     Indication: PYREXIA
     Dosage: 70 MG, QD
     Route: 048
     Dates: start: 20110407, end: 20110412
  14. MEROPENEM [Concomitant]
     Indication: PYREXIA
     Dosage: 1 MG, TID
     Route: 042
     Dates: start: 20110407, end: 20110414
  15. PIPERACILLIN AND TAZOBACTAM [Concomitant]
     Indication: PYREXIA
     Dosage: 2.25 MG ONCE FOR THREE DAYS
     Dates: start: 20110415, end: 20110426
  16. VFEND [Concomitant]
     Indication: PYREXIA
     Dosage: 1 G PER TWO DAYS
     Route: 048
     Dates: start: 20110413, end: 20110421
  17. CYTOSAR-U [Concomitant]
     Indication: MYELODYSPLASTIC SYNDROME
     Dosage: 1000 MG/M2, BID
     Route: 042
     Dates: start: 20110329, end: 20110403
  18. FLAGYL [Concomitant]
     Indication: PYREXIA
     Dosage: 500 MG ONCE PER THREE DAYS
     Route: 048
     Dates: start: 20110410, end: 20110503

REACTIONS (7)
  - HEPATOCELLULAR INJURY [None]
  - SEROTONIN SYNDROME [None]
  - RHABDOMYOLYSIS [None]
  - MYALGIA [None]
  - COAGULOPATHY [None]
  - BLOOD CREATINE PHOSPHOKINASE INCREASED [None]
  - RASH [None]
